FAERS Safety Report 8327447 (Version 4)
Quarter: 2012Q4

REPORT INFORMATION
  Report Type: 
  Country: US (occurrence: US)
  Receive Date: 20120109
  Receipt Date: 20121221
  Transmission Date: 20130627
  Serious: Yes (Hospitalization, Other)
  Sender: FDA-Public Use
  Company Number: US-ACTELION-A-US2007-14053

PATIENT
  Age: 77 Year
  Sex: Female
  Weight: 72.56 kg

DRUGS (17)
  1. TRACLEER [Suspect]
     Indication: PULMONARY HYPERTENSION
     Dosage: 125 mg, bid
     Route: 048
  2. TRACLEER [Suspect]
     Dosage: 62.5 UNK, UNK
     Route: 048
     Dates: start: 20050930
  3. REVATIO [Concomitant]
     Dosage: 20 mg, tid
  4. NASONEX [Concomitant]
  5. FUROSEMIDE [Concomitant]
  6. OMEPRAZOLE [Concomitant]
  7. ATENOLOL [Concomitant]
     Dosage: 50 mg, tid
  8. VITAMINS [Concomitant]
  9. IRON [Concomitant]
  10. TRIAMTERENE AND HYDROCHLOROTHIAZID [Concomitant]
  11. NEXIUM [Concomitant]
  12. WARFARIN [Concomitant]
     Dosage: 5 mg, od
  13. MUCINEX [Concomitant]
  14. IPRATROPIUM [Concomitant]
  15. RESTASIS [Concomitant]
  16. LEVOTHYROXINE [Concomitant]
  17. DIAZEPAM [Concomitant]
     Dosage: 7.5 mg, qpm

REACTIONS (15)
  - Confusional state [Unknown]
  - Nasal congestion [Recovering/Resolving]
  - Abdominal wall haematoma [Recovered/Resolved]
  - Pneumonia [Recovered/Resolved]
  - Headache [Not Recovered/Not Resolved]
  - Dysgeusia [Unknown]
  - Alopecia [Unknown]
  - Chest pain [Unknown]
  - Dyspnoea [Unknown]
  - Increased upper airway secretion [Unknown]
  - Cough [Recovered/Resolved]
  - Pyrexia [Recovered/Resolved]
  - Insomnia [Recovered/Resolved]
  - Oxygen saturation decreased [Recovering/Resolving]
  - Pulmonary oedema [Recovered/Resolved]
